FAERS Safety Report 8500073-0 (Version None)
Quarter: 2012Q3

REPORT INFORMATION
  Report Type: 
  Country: None (occurrence: None)
  Receive Date: 20120710
  Receipt Date: 20120703
  Transmission Date: 20120928
  Serious: Yes (Hospitalization)
  Sender: FDA-Public Use
  Company Number: US-BAYER-2012-067537

PATIENT
  Age: 25 Year
  Sex: Female
  Weight: 128.3 kg

DRUGS (9)
  1. YASMIN [Suspect]
  2. KLONOPIN [Concomitant]
  3. DROSPIRENONE AND ETHINYL ESTRADIOL [Suspect]
  4. CITALOPRAM HYDROBROMIDE [Concomitant]
     Dosage: 20 MG, 1 TABLET EVERY MORNING AND ? TABLET EVERY NIGHT
     Route: 048
  5. ALBUTEROL [Concomitant]
     Indication: DYSPNOEA
     Dosage: 2 PUFF(S), PRN
  6. ALBUTEROL [Concomitant]
     Indication: WHEEZING
  7. ALPRAZOLAM [Concomitant]
     Indication: ANXIETY
     Dosage: 0.25 MG, BID
     Route: 048
  8. CYCLOBENZAPRINE HCL [Concomitant]
     Indication: PAIN
     Dosage: 10 MG HALF TO 1 TABLET AT BEDTIME AS NEEDED
     Route: 048
     Dates: start: 20101006
  9. IBUPROFEN [Concomitant]
     Indication: PAIN
     Dosage: 800 MG, PRN
     Route: 048
     Dates: start: 20101006

REACTIONS (1)
  - PULMONARY EMBOLISM [None]
